FAERS Safety Report 9403210 (Version 1)
Quarter: 2013Q3

REPORT INFORMATION
  Report Type: Spontaneous
  Country: US (occurrence: None)
  Receive Date: 20130715
  Receipt Date: 20130715
  Transmission Date: 20140515
  Serious: Yes (Hospitalization)
  Sender: FDA-Public Use
  Company Number: None

PATIENT
  Age: 82 None
  Sex: Male
  Weight: 65 kg

DRUGS (2)
  1. WARFARIN [Suspect]
     Indication: ATRIAL FIBRILLATION
     Route: 048
     Dates: start: 20130520
  2. CIPROFLOXACIN [Suspect]
     Route: 048
     Dates: start: 20130520, end: 20130524

REACTIONS (1)
  - Gastric haemorrhage [None]
